FAERS Safety Report 9695923 (Version 1)
Quarter: 2013Q4

REPORT INFORMATION
  Report Type: Spontaneous
  Country: US (occurrence: None)
  Receive Date: 20131118
  Receipt Date: 20131118
  Transmission Date: 20140711
  Serious: No
  Sender: FDA-Public Use
  Company Number: None

PATIENT
  Age: 10 Year
  Sex: Male
  Weight: 27.67 kg

DRUGS (2)
  1. D-AMPHETAM SALT ER CAP [Suspect]
     Indication: ATTENTION DEFICIT/HYPERACTIVITY DISORDER
     Dosage: 1    ONCE DAILY  TAKEN BY MOUTH
     Route: 048
  2. D-AMPHETAM SALT ER CAP [Suspect]
     Indication: ABNORMAL BEHAVIOUR
     Dosage: 1    ONCE DAILY  TAKEN BY MOUTH
     Route: 048

REACTIONS (4)
  - Disturbance in attention [None]
  - Impulsive behaviour [None]
  - Headache [None]
  - Nausea [None]
